FAERS Safety Report 16271878 (Version 1)
Quarter: 2019Q2

REPORT INFORMATION
  Report Type: Spontaneous
  Country: FR (occurrence: FR)
  Receive Date: 20190503
  Receipt Date: 20190503
  Transmission Date: 20190711
  Serious: Yes (Disabling)
  Sender: FDA-Public Use
  Company Number: FR-MYLANLABS-2019M1042179

PATIENT
  Age: 25 Year
  Sex: Male
  Weight: 73 kg

DRUGS (1)
  1. ESCITALOPRAM [Suspect]
     Active Substance: ESCITALOPRAM OXALATE
     Indication: DEPRESSION
     Dosage: 1 DOSAGE FORM, QD
     Route: 048
     Dates: start: 20181022, end: 20181115

REACTIONS (8)
  - Weight decreased [Not Recovered/Not Resolved]
  - Hypersensitivity [Recovering/Resolving]
  - Movement disorder [Recovering/Resolving]
  - Abdominal pain upper [Recovered/Resolved]
  - Asthenia [Recovering/Resolving]
  - Disorientation [Recovered/Resolved]
  - Drug ineffective [Recovered/Resolved]
  - Product substitution issue [Recovered/Resolved]

NARRATIVE: CASE EVENT DATE: 20181023
